FAERS Safety Report 8875843 (Version 2)
Quarter: 2012Q4

REPORT INFORMATION
  Report Type: 
  Country: JP (occurrence: JP)
  Receive Date: 20121030
  Receipt Date: 20121106
  Transmission Date: 20130627
  Serious: Yes (Hospitalization)
  Sender: FDA-Public Use
  Company Number: JP-GLAXOSMITHKLINE-B0840841A

PATIENT
  Sex: Female

DRUGS (3)
  1. LAMICTAL [Suspect]
     Indication: BIPOLAR DISORDER
     Route: 048
     Dates: start: 201209
  2. UNSPECIFIED INGREDIENT [Suspect]
     Indication: NASOPHARYNGITIS
     Dosage: 25MG Three times per day
     Route: 048
     Dates: start: 20120928, end: 20120929
  3. PRANOPROFEN [Suspect]
     Indication: NASOPHARYNGITIS
     Dosage: 75MG Per day
     Route: 048

REACTIONS (5)
  - Stevens-Johnson syndrome [Unknown]
  - Erythema multiforme [Unknown]
  - Nasopharyngitis [Unknown]
  - Pyrexia [Unknown]
  - Aphthous stomatitis [Unknown]
